FAERS Safety Report 4456573-6 (Version None)
Quarter: 2004Q3

REPORT INFORMATION
  Report Type: 
  Country: None (occurrence: None)
  Receive Date: 20040921
  Receipt Date: 20040908
  Transmission Date: 20050211
  Serious: Yes (Other)
  Sender: FDA-Public Use
  Company Number: 2004056510

PATIENT
  Age: 49 Year
  Sex: Female

DRUGS (2)
  1. VFEND [Suspect]
     Indication: BRONCHOPULMONARY ASPERGILLOSIS
     Dosage: (2 IN 1 D), INTRAVENOUS
     Route: 042
     Dates: start: 20040101, end: 20040101
  2. CYCLOSPORINE [Concomitant]

REACTIONS (4)
  - BONE MARROW TRANSPLANT REJECTION [None]
  - HEPATIC FAILURE [None]
  - HEPATOTOXICITY [None]
  - THERAPY NON-RESPONDER [None]
